FAERS Safety Report 5949482-4 (Version None)
Quarter: 2008Q4

REPORT INFORMATION
  Report Type: 
  Country: None (occurrence: None)
  Receive Date: 20081112
  Receipt Date: 20081104
  Transmission Date: 20090506
  Serious: Yes (Disabling, Other)
  Sender: FDA-Public Use
  Company Number: PHEH2008US09095

PATIENT
  Age: 62 Year
  Sex: Female

DRUGS (17)
  1. RECLAST [Suspect]
     Indication: OSTEOPOROSIS
     Dosage: 5 MG, ONCE/SINGLE
     Route: 042
     Dates: start: 20080813, end: 20080813
  2. ADDERALL 10 [Concomitant]
     Dosage: 2.5 MG, BID
  3. ZONEGRAN [Concomitant]
     Dosage: 100 MG, BID
  4. COUMADIN [Concomitant]
     Dosage: 4 MG, QD
  5. SINEMET [Concomitant]
     Dosage: 25/100MG QD
  6. OMEPRAZOLE [Concomitant]
     Dosage: 20 MG, QD
  7. ELAVIL [Concomitant]
     Dosage: 50 MG, QD
  8. SALAGEN [Concomitant]
     Dosage: 5 MG, TID
  9. PROMETHAZINE [Concomitant]
     Dosage: 25 MG, Q6H PRN
  10. LASIX [Concomitant]
     Dosage: 20 MG, BID PRN
  11. POTASSIUM CHLORIDE [Concomitant]
     Dosage: 20 MEQ, QD PRN
  12. FENTANYL [Concomitant]
     Dosage: 100 UG, Q72 HOURS
  13. LORCET-HD [Concomitant]
     Dosage: 10/600
  14. MULTI-VITAMINS [Concomitant]
     Dosage: UNK
  15. COQ10 [Concomitant]
     Dosage: 100 MG, QD
  16. GREEN TEA [Concomitant]
     Dosage: 500 MG, QD
  17. CALCIUM WITH VITAMIN D [Concomitant]
     Dosage: 1200 MG, QD

REACTIONS (4)
  - ANTINUCLEAR ANTIBODY POSITIVE [None]
  - ARTIFICIAL CROWN PROCEDURE [None]
  - BLOOD ALKALINE PHOSPHATASE INCREASED [None]
  - GINGIVAL DISORDER [None]
